FAERS Safety Report 5361772-5 (Version None)
Quarter: 2007Q2

REPORT INFORMATION
  Report Type: 
  Country: None (occurrence: None)
  Receive Date: 20070619
  Receipt Date: 20070608
  Transmission Date: 20071010
  Serious: Yes (Other)
  Sender: FDA-Public Use
  Company Number: US-JNJFOC-20070305315

PATIENT
  Sex: Female
  Weight: 54.43 kg

DRUGS (1)
  1. ARESTIN [Suspect]
     Indication: INFLAMMATION
     Route: 065

REACTIONS (1)
  - HYPERSENSITIVITY [None]
